FAERS Safety Report 5930857-4 (Version None)
Quarter: 2008Q4

REPORT INFORMATION
  Report Type: 
  Country: None (occurrence: None)
  Receive Date: 20081027
  Receipt Date: 20080924
  Transmission Date: 20090506
  Serious: No
  Sender: FDA-Public Use
  Company Number: US-BAYER-200834603NA

PATIENT
  Sex: Female

DRUGS (3)
  1. YASMIN [Suspect]
     Indication: CONTRACEPTION
     Route: 048
     Dates: start: 20070101
  2. ENSURE IMMUNE SUPPORT DROPS [Concomitant]
     Indication: RHINOVIRUS INFECTION
  3. OTC MEDICATIONS [Concomitant]
     Indication: RHINOVIRUS INFECTION

REACTIONS (2)
  - LIBIDO DECREASED [None]
  - NAUSEA [None]
